FAERS Safety Report 9361208 (Version 1)
Quarter: 2013Q2

REPORT INFORMATION
  Report Type: Spontaneous
  Country: US (occurrence: None)
  Receive Date: 20130618
  Receipt Date: 20130618
  Transmission Date: 20140414
  Serious: Yes (Hospitalization)
  Sender: FDA-Public Use
  Company Number: US-LHC-2013027

PATIENT
  Age: 43 Year
  Sex: Female
  Weight: 82.64 kg

DRUGS (1)
  1. CARBON DIOXIDE [Suspect]
     Indication: LAPAROSCOPY
     Dosage: INSUFFLATION

REACTIONS (8)
  - Circulatory collapse [None]
  - Cardiac arrest [None]
  - Ventricular fibrillation [None]
  - Electrocardiogram ST segment elevation [None]
  - Paradoxical embolism [None]
  - Right ventricular dysfunction [None]
  - Dilatation atrial [None]
  - Ejection fraction decreased [None]
